FAERS Safety Report 25579787 (Version 1)
Quarter: 2025Q3

REPORT INFORMATION
  Report Type: Spontaneous
  Country: US (occurrence: US)
  Receive Date: 20250718
  Receipt Date: 20250718
  Transmission Date: 20251021
  Serious: No
  Sender: NOVO NORDISK
  Company Number: US-NOVOPROD-1299384

PATIENT
  Age: 48 Year
  Sex: Female

DRUGS (1)
  1. WEGOVY [Suspect]
     Active Substance: SEMAGLUTIDE
     Indication: Weight control
     Dosage: 1 MG, QD
     Route: 058
     Dates: start: 20240701, end: 20240701

REACTIONS (4)
  - Dyspnoea [Recovering/Resolving]
  - Depression [Recovering/Resolving]
  - Heart rate increased [Recovering/Resolving]
  - Inappropriate schedule of product administration [Unknown]

NARRATIVE: CASE EVENT DATE: 20240703
